FAERS Safety Report 25289669 (Version 3)
Quarter: 2025Q2

REPORT INFORMATION
  Report Type: Spontaneous
  Country: CA (occurrence: CA)
  Receive Date: 20250509
  Receipt Date: 20250612
  Transmission Date: 20250716
  Serious: Yes (Other)
  Sender: TEVA
  Company Number: CA-TEVA-VS-3328275

PATIENT
  Sex: Female

DRUGS (1)
  1. TOPIRAMATE [Suspect]
     Active Substance: TOPIRAMATE
     Indication: Arachnoiditis
     Dosage: PATIENT TOOK 325MG IN MORNING AND 175MG IN EVENING, STRENGTH 100MG AND 25MG.
     Route: 048
     Dates: start: 2001

REACTIONS (4)
  - Spinal fracture [Unknown]
  - Drug ineffective for unapproved indication [Unknown]
  - Osteoporosis [Unknown]
  - Memory impairment [Unknown]
